FAERS Safety Report 16733295 (Version 2)
Quarter: 2019Q3

REPORT INFORMATION
  Report Type: Spontaneous
  Country: US (occurrence: US)
  Receive Date: 20190823
  Receipt Date: 20190828
  Transmission Date: 20191005
  Serious: No
  Sender: FDA-Public Use
  Company Number: US-TEVA-2019-US-1095781

PATIENT
  Sex: Female
  Weight: 76.2 kg

DRUGS (1)
  1. OXYBUTYNIN. [Suspect]
     Active Substance: OXYBUTYNIN CHLORIDE
     Indication: URINARY INCONTINENCE
     Route: 065

REACTIONS (4)
  - Drug ineffective [Unknown]
  - Dizziness [Unknown]
  - Impaired driving ability [Unknown]
  - Dry mouth [Unknown]
